FAERS Safety Report 8276748-8 (Version None)
Quarter: 2012Q2

REPORT INFORMATION
  Report Type: 
  Country: None (occurrence: None)
  Receive Date: 20120412
  Receipt Date: 20120404
  Transmission Date: 20120825
  Serious: Yes (Hospitalization)
  Sender: FDA-Public Use
  Company Number: US-ROXANE LABORATORIES, INC.-2012-RO-00997RO

PATIENT
  Sex: Male
  Weight: 82 kg

DRUGS (9)
  1. PROMETHAZINE [Concomitant]
     Indication: NAUSEA
  2. TOBRAMYCIN-DEXAMETHASONE [Suspect]
     Indication: EYE INJURY
     Route: 061
     Dates: start: 20120316
  3. NEXXIUM [Concomitant]
     Indication: HIATUS HERNIA
  4. PREVACID [Concomitant]
     Indication: PEPTIC ULCER
  5. PERCOCET [Concomitant]
     Indication: PAIN
  6. PROZAC [Concomitant]
     Indication: BIPOLAR DISORDER
  7. LITHIUM CARBONATE [Suspect]
     Dosage: 1200 MG
  8. DIAZEPAM [Suspect]
     Dosage: 15 MG
  9. NEXXIUM [Concomitant]
     Indication: PEPTIC ULCER

REACTIONS (1)
  - CONVULSION [None]
